FAERS Safety Report 4415541-0 (Version None)
Quarter: 2004Q3

REPORT INFORMATION
  Report Type: 
  Country: None (occurrence: None)
  Receive Date: 20040730
  Receipt Date: 20040719
  Transmission Date: 20050211
  Serious: Yes (Hospitalization, Other)
  Sender: FDA-Public Use
  Company Number: HQWYE245719JUL04

PATIENT
  Age: 3 Year
  Sex: Female

DRUGS (2)
  1. CHILDREN'S ADVIL [Suspect]
     Indication: PYREXIA
     Dosage: 1 DOSE/KG  ORAL
     Route: 048
     Dates: start: 20040619, end: 20040619
  2. DOLIPRANE (PARACETAMOL) [Concomitant]

REACTIONS (6)
  - ASTHENIA [None]
  - CONDITION AGGRAVATED [None]
  - LICE INFESTATION [None]
  - PAIN [None]
  - PERIORBITAL OEDEMA [None]
  - PYREXIA [None]
